FAERS Safety Report 7586983-X (Version None)
Quarter: 2011Q3

REPORT INFORMATION
  Report Type: 
  Country: None (occurrence: None)
  Receive Date: 20110701
  Receipt Date: 20110623
  Transmission Date: 20111222
  Serious: Yes (Other)
  Sender: FDA-Public Use
  Company Number: PHHY2011US16692

PATIENT
  Sex: Male
  Weight: 104 kg

DRUGS (8)
  1. GILENYA [Suspect]
     Dosage: 0.5 MG, QD
     Route: 048
     Dates: start: 20110411
  2. PLAVIX [Concomitant]
     Dosage: 75 OT, UNK
  3. PROTONIX [Concomitant]
  4. ASPIRIN [Concomitant]
     Dosage: 325 OT, UNK
  5. IMOVR [Concomitant]
     Dosage: 30 OT, UNK
  6. LOVASTATIN [Concomitant]
     Dosage: 40 OT, UNK
  7. GILENYA [Suspect]
     Indication: MULTIPLE SCLEROSIS
     Dosage: 0.5 MG, QD
     Route: 048
     Dates: start: 20110214, end: 20110218
  8. LISINOPRIL [Concomitant]
     Dosage: 2.5 OT, UNK

REACTIONS (2)
  - CHEST PAIN [None]
  - ANGINA PECTORIS [None]
